FAERS Safety Report 14046250 (Version 1)
Quarter: 2017Q4

REPORT INFORMATION
  Report Type: Spontaneous
  Country: US (occurrence: US)
  Receive Date: 20171005
  Receipt Date: 20171005
  Transmission Date: 20180321
  Serious: Yes (Life-Threatening, Other)
  Sender: FDA-Public Use
  Company Number: US-INDIVIOR LIMITED-INDV-098732-2017

PATIENT
  Sex: Male

DRUGS (1)
  1. SUBOXONE [Suspect]
     Active Substance: BUPRENORPHINE HYDROCHLORIDE\NALOXONE HYDROCHLORIDE
     Indication: PRODUCT USED FOR UNKNOWN INDICATION
     Dosage: 8 MG, BID
     Route: 060

REACTIONS (6)
  - Oedema peripheral [Unknown]
  - Hypersensitivity [Unknown]
  - Headache [Unknown]
  - Product use issue [Recovered/Resolved]
  - Liver injury [Unknown]
  - Intentional underdose [Recovered/Resolved]
